FAERS Safety Report 4293052-3 (Version None)
Quarter: 2004Q1

REPORT INFORMATION
  Report Type: 
  Country: None (occurrence: None)
  Receive Date: 20040212
  Receipt Date: 20010824
  Transmission Date: 20041129
  Serious: No
  Sender: FDA-Public Use
  Company Number: US-GLAXOSMITHKLINE-A0352263A

PATIENT
  Age: 27 Year
  Sex: Female

DRUGS (10)
  1. PAXIL [Suspect]
     Indication: OBSESSIVE-COMPULSIVE DISORDER
     Route: 048
     Dates: end: 20010101
  2. EFFEXOR [Concomitant]
  3. ZANTAC [Concomitant]
  4. TETRACYCLINE [Concomitant]
     Indication: ACNE
     Dosage: 500MG TWICE PER DAY
  5. CLEOCIN [Concomitant]
     Indication: ACNE
  6. ZYRTEC [Concomitant]
     Dosage: 10MG THREE TIMES PER DAY
  7. HYDROCHLOROTHIAZIDE [Concomitant]
     Dosage: 25MG ALTERNATE DAYS
  8. MOTRIN [Concomitant]
     Dosage: 800MG AS REQUIRED
  9. PROGESTERONE [Concomitant]
     Route: 030
  10. PROVERA [Concomitant]
     Dosage: 10MG TWICE PER DAY

REACTIONS (5)
  - DIZZINESS [None]
  - DRUG WITHDRAWAL SYNDROME [None]
  - MALAISE [None]
  - PARAESTHESIA [None]
  - WEIGHT INCREASED [None]
